FAERS Safety Report 7357955-5 (Version None)
Quarter: 2011Q1

REPORT INFORMATION
  Report Type: 
  Country: None (occurrence: None)
  Receive Date: 20110307
  Receipt Date: 20101005
  Transmission Date: 20110831
  Serious: No
  Sender: FDA-Public Use
  Company Number: AECAN201000383

PATIENT
  Sex: Female

DRUGS (1)
  1. PROLASTIN [Suspect]
     Dosage: 1X;
     Dates: start: 20100929, end: 20100929

REACTIONS (1)
  - INJURY ASSOCIATED WITH DEVICE [None]
